FAERS Safety Report 5501731-2 (Version None)
Quarter: 2007Q4

REPORT INFORMATION
  Report Type: 
  Country: None (occurrence: None)
  Receive Date: 20071026
  Receipt Date: 20071026
  Transmission Date: 20080405
  Serious: No
  Sender: FDA-Public Use
  Company Number: None

PATIENT
  Age: 44 Year
  Sex: Female
  Weight: 58.0604 kg

DRUGS (1)
  1. ZICAM COLD REMEDY MATRIXX [Suspect]
     Indication: NASOPHARYNGITIS
     Dosage: ONE SQUIRT PER NOSTRIL NASAL
     Route: 045

REACTIONS (2)
  - AGEUSIA [None]
  - HYPOSMIA [None]
